FAERS Safety Report 11737173 (Version 1)
Quarter: 2015Q4

REPORT INFORMATION
  Report Type: Spontaneous
  Country: US (occurrence: None)
  Receive Date: 20151112
  Receipt Date: 20151112
  Transmission Date: 20160304
  Serious: Yes (Other)
  Sender: FDA-Public Use
  Company Number: None

PATIENT
  Age: 30 Year
  Sex: Female
  Weight: 66.23 kg

DRUGS (4)
  1. ORAL ANTIBIOTICS [Concomitant]
     Active Substance: UNSPECIFIED INGREDIENT
  2. CIPRODEX OTIC SOLUTION [Concomitant]
  3. FISH OIL PILLS [Concomitant]
  4. CIPROFLOXACIN 500 MG 124430504726 GENERIC [Suspect]
     Active Substance: CIPROFLOXACIN
     Indication: DIARRHOEA INFECTIOUS
     Route: 048

REACTIONS (2)
  - Pharyngeal oedema [None]
  - Urticaria [None]

NARRATIVE: CASE EVENT DATE: 20151108
